FAERS Safety Report 4707289-X (Version None)
Quarter: 2005Q3

REPORT INFORMATION
  Report Type: 
  Country: None (occurrence: None)
  Receive Date: 20050701
  Receipt Date: 20050701
  Transmission Date: 20060218
  Serious: Yes (Hospitalization)
  Sender: FDA-Public Use
  Company Number: None

PATIENT
  Age: 49 Year
  Sex: Male
  Weight: 74.8435 kg

DRUGS (1)
  1. CELEBREX [Suspect]
     Indication: TENDONITIS
     Dates: start: 20050520, end: 20050618

REACTIONS (2)
  - CEREBROVASCULAR ACCIDENT [None]
  - PARALYSIS [None]
